FAERS Safety Report 12552174 (Version 1)
Quarter: 2016Q3

REPORT INFORMATION
  Report Type: Spontaneous
  Country: US (occurrence: US)
  Receive Date: 20160713
  Receipt Date: 20160713
  Transmission Date: 20161109
  Serious: Yes (Other)
  Sender: FDA-Public Use
  Company Number: US-ACTAVIS-2016-15050

PATIENT
  Age: 56 Year
  Sex: Female

DRUGS (1)
  1. IBUPROFEN (AMALLC) [Suspect]
     Active Substance: IBUPROFEN
     Indication: HEADACHE
     Dosage: 3200 MG, DAILY
     Route: 048

REACTIONS (3)
  - Tubulointerstitial nephritis [Recovering/Resolving]
  - Overdose [Unknown]
  - Evans syndrome [Recovering/Resolving]
